FAERS Safety Report 6743685-7 (Version None)
Quarter: 2010Q2

REPORT INFORMATION
  Report Type: 
  Country: None (occurrence: None)
  Receive Date: 20100527
  Receipt Date: 20100514
  Transmission Date: 20101027
  Serious: Yes (Other)
  Sender: FDA-Public Use
  Company Number: US-BAYER-201013480NA

PATIENT
  Age: 34 Year
  Sex: Female
  Weight: 91 kg

DRUGS (2)
  1. YASMIN [Suspect]
     Indication: DRUG USE FOR UNKNOWN INDICATION
     Dates: start: 20000101, end: 20060101
  2. YAZ [Suspect]
     Indication: DRUG USE FOR UNKNOWN INDICATION

REACTIONS (4)
  - ABDOMINAL DISTENSION [None]
  - ABDOMINAL PAIN UPPER [None]
  - CHOLECYSTITIS CHRONIC [None]
  - CHOLELITHIASIS [None]
